FAERS Safety Report 5324448-6 (Version None)
Quarter: 2007Q2

REPORT INFORMATION
  Report Type: 
  Country: None (occurrence: None)
  Receive Date: 20070514
  Receipt Date: 20070502
  Transmission Date: 20071010
  Serious: Yes (Disabling)
  Sender: FDA-Public Use
  Company Number: BR-PFIZER INC-2007036891

PATIENT
  Sex: Female

DRUGS (9)
  1. REVATIO [Suspect]
     Indication: PULMONARY HYPERTENSION
     Route: 048
  2. ALDACTONE [Concomitant]
     Route: 048
  3. LASIX [Concomitant]
  4. DIGOXIN [Concomitant]
  5. ANCORON [Concomitant]
  6. WARFARIN SODIUM [Concomitant]
  7. OXYGEN [Concomitant]
  8. BOSENTAN [Concomitant]
  9. VIAGRA [Concomitant]
     Route: 048
     Dates: start: 20030101

REACTIONS (3)
  - GAIT DISTURBANCE [None]
  - INSOMNIA [None]
  - PAIN [None]
